FAERS Safety Report 22136056 (Version 3)
Quarter: 2023Q2

REPORT INFORMATION
  Report Type: Spontaneous
  Country: AT (occurrence: AT)
  Receive Date: 20230324
  Receipt Date: 20230428
  Transmission Date: 20230722
  Serious: Yes (Other)
  Sender: FDA-Public Use
  Company Number: AT-BAXTER-2023BAX011989

PATIENT
  Sex: Male

DRUGS (13)
  1. DOXORUBICIN [Suspect]
     Active Substance: DOXORUBICIN
     Indication: Mantle cell lymphoma
     Dosage: START DATE: SEP-2019, STOP DATE: JAN-2022, DRUG SEPARATE DOSAGE NUMBER 1
     Route: 065
  2. DEXAMETHASONE [Suspect]
     Active Substance: DEXAMETHASONE
     Indication: Mantle cell lymphoma
     Dosage: DRUG SEPARATE DOSAGE NUMBER 1,
     Route: 065
  3. VINCRISTINE [Suspect]
     Active Substance: VINCRISTINE
     Indication: Mantle cell lymphoma
     Dosage: START DATE: SEP-2019, STOP DATE: JAN-2022, DRUG SEPARATE DOSAGE NUMBER 1
     Route: 065
  4. CARMUSTINE [Suspect]
     Active Substance: CARMUSTINE
     Indication: Mantle cell lymphoma
     Dosage: DRUG SEPARATE DOSAGE NUMBER 1
     Route: 065
  5. ETOPOSIDE [Suspect]
     Active Substance: ETOPOSIDE
     Indication: Mantle cell lymphoma
     Dosage: DRUG SEPARATE DOSAGE NUMBER 1
     Route: 065
  6. IBRUTINIB [Suspect]
     Active Substance: IBRUTINIB
     Indication: Mantle cell lymphoma
     Dosage: START DATE: JUN-2022, STOP DATE: JUL-2022, DRUG SEPARATE DOSAGE NUMBER 1
     Route: 065
  7. CISPLATIN [Suspect]
     Active Substance: CISPLATIN
     Indication: Mantle cell lymphoma
     Dosage: DRUG SEPARATE DOSAGE NUMBER 1
     Route: 065
  8. RITUXIMAB [Suspect]
     Active Substance: RITUXIMAB
     Indication: Mantle cell lymphoma
     Dosage: START DATE: SEP-2019, STOP DATE: DEC-2022, DRUG SEPARATE DOSAGE NUMBER 1
     Route: 065
  9. PREDNISOLONE [Suspect]
     Active Substance: PREDNISOLONE
     Indication: Mantle cell lymphoma
     Dosage: START DATE: SEP-2019, STOP DATE: JAN-2022, DRUG SEPARATE DOSAGE NUMBER 1
     Route: 065
  10. VENETOCLAX [Suspect]
     Active Substance: VENETOCLAX
     Indication: Mantle cell lymphoma
     Dosage: START DATE: JUN-2022, STOP DATE: JUL-2022, DRUG SEPARATE DOSAGE NUMBER 1
     Route: 065
  11. MELPHALAN [Suspect]
     Active Substance: MELPHALAN
     Indication: Mantle cell lymphoma
     Dosage: DRUG SEPARATE DOSAGE NUMBER 1
     Route: 065
  12. CYTARABINE [Suspect]
     Active Substance: CYTARABINE
     Indication: Mantle cell lymphoma
     Dosage: DRUG SEPARATE DOSAGE NUMBER 1
     Route: 065
  13. CYCLOPHOSPHAMIDE [Suspect]
     Active Substance: CYCLOPHOSPHAMIDE
     Indication: Mantle cell lymphoma
     Dosage: START DATE: SEP-2019, STOP DATE: JAN-2022, DRUG SEPARATE DOSAGE NUMBER 1
     Route: 065

REACTIONS (2)
  - Disease progression [Unknown]
  - Blood lactate dehydrogenase increased [Unknown]
